FAERS Safety Report 14996976 (Version 1)
Quarter: 2018Q2

REPORT INFORMATION
  Report Type: Spontaneous
  Country: US (occurrence: US)
  Receive Date: 20180518
  Receipt Date: 20180518
  Transmission Date: 20180711
  Serious: Yes (Other)
  Sender: FDA-Public Use
  Company Number: None

PATIENT
  Age: 29 Year
  Sex: Female
  Weight: 112.49 kg

DRUGS (1)
  1. ZUBSOLV [Suspect]
     Active Substance: BUPRENORPHINE HYDROCHLORIDE\NALOXONE HYDROCHLORIDE
     Indication: DRUG WITHDRAWAL SYNDROME
     Route: 065
     Dates: start: 20180511, end: 20180518

REACTIONS (6)
  - Nausea [None]
  - Somnolence [None]
  - Depressed level of consciousness [None]
  - Migraine [None]
  - Photophobia [None]
  - Apathy [None]

NARRATIVE: CASE EVENT DATE: 20180518
